FAERS Safety Report 13446132 (Version 4)
Quarter: 2018Q1

REPORT INFORMATION
  Report Type: Report from Study
  Country: BR (occurrence: BR)
  Receive Date: 20170417
  Receipt Date: 20180308
  Transmission Date: 20180508
  Serious: Yes (Hospitalization)
  Sender: FDA-Public Use
  Company Number: BR-TAKEDA-2017TUS005386

PATIENT
  Sex: Female

DRUGS (1)
  1. VEDOLIZUMAB [Suspect]
     Active Substance: VEDOLIZUMAB
     Indication: COLITIS
     Dosage: 300 MG, UNK
     Route: 042
     Dates: start: 20160802, end: 201708

REACTIONS (6)
  - Off label use [Unknown]
  - Drug ineffective [Unknown]
  - Dizziness [Unknown]
  - Rectal abscess [Unknown]
  - Syncope [Unknown]
  - Nausea [Unknown]
